FAERS Safety Report 5649748-1 (Version None)
Quarter: 2008Q1

REPORT INFORMATION
  Report Type: 
  Country: None (occurrence: None)
  Receive Date: 20080304
  Receipt Date: 20080221
  Transmission Date: 20080703
  Serious: Yes (Hospitalization)
  Sender: FDA-Public Use
  Company Number: TW-PFIZER INC-2008014463

PATIENT
  Sex: Male
  Weight: 78 kg

DRUGS (5)
  1. SU-011,248 [Suspect]
     Indication: METASTATIC RENAL CELL CARCINOMA
     Route: 048
  2. CLODRONATE DISODIUM [Concomitant]
     Route: 048
  3. BROMHEXINE [Concomitant]
     Route: 048
  4. BIOFERMIN [Concomitant]
     Route: 048
  5. ZOLPIDEM [Concomitant]
     Route: 048

REACTIONS (2)
  - DUODENITIS [None]
  - EROSIVE OESOPHAGITIS [None]
